FAERS Safety Report 9305235 (Version 3)
Quarter: 2014Q1

REPORT INFORMATION
  Report Type: Report from Study
  Country: NO (occurrence: NO)
  Receive Date: 20130523
  Receipt Date: 20140218
  Transmission Date: 20141002
  Serious: Yes (Life-Threatening, Hospitalization)
  Sender: FDA-Public Use
  Company Number: NO-JNJFOC-20130508281

PATIENT
  Age: 66 Year
  Sex: Male
  Weight: 59 kg

DRUGS (8)
  1. REMICADE [Suspect]
     Indication: COLITIS ULCERATIVE
     Dosage: UNSPECIFIED DOSE AT WEEK 0, 2 AND 6 AND SUBSEQUENTLY ONCE EVERY 8 WEEKS
     Route: 042
     Dates: start: 20101220
  2. REMICADE [Suspect]
     Indication: COLITIS ULCERATIVE
     Route: 042
     Dates: start: 20110429, end: 20110429
  3. LOPERAMIDE [Suspect]
     Indication: PRODUCT USED FOR UNKNOWN INDICATION
     Route: 065
  4. ZYRTEC [Concomitant]
     Indication: PRURITUS
     Dosage: 1X1
     Route: 065
  5. NEXIUM [Concomitant]
     Indication: GASTROOESOPHAGEAL REFLUX DISEASE
     Dosage: FREQUENCY ^1X2^
     Route: 048
  6. MESASAL [Concomitant]
     Indication: PROCTITIS
     Dosage: FREQUENCY ^1X2^
     Route: 065
  7. CALCIGRAN FORTE [Concomitant]
     Indication: OSTEOPOROSIS
     Dosage: FREQUENCY ^1X2^
     Route: 048
  8. AFI-D2-FORTE [Concomitant]
     Route: 065

REACTIONS (3)
  - Cytomegalovirus gastrointestinal infection [Recovered/Resolved]
  - Drug ineffective [Unknown]
  - Subileus [Recovered/Resolved]
